FAERS Safety Report 13849505 (Version 1)
Quarter: 2017Q3

REPORT INFORMATION
  Report Type: Spontaneous
  Country: PR (occurrence: PR)
  Receive Date: 20170809
  Receipt Date: 20170809
  Transmission Date: 20171127
  Serious: No
  Sender: FDA-Public Use
  Company Number: PR-PFIZER INC-2017339514

PATIENT
  Age: 44 Year
  Sex: Male
  Weight: 131.52 kg

DRUGS (1)
  1. BOSUTINIB [Suspect]
     Active Substance: BOSUTINIB
     Indication: ACUTE MYELOID LEUKAEMIA
     Dosage: 500 MG, DAILY
     Route: 048
     Dates: start: 20170620

REACTIONS (3)
  - Haemoglobin decreased [Unknown]
  - Drug dose omission [Unknown]
  - Asthenia [Unknown]
